FAERS Safety Report 7028675-1 (Version None)
Quarter: 2010Q4

REPORT INFORMATION
  Report Type: 
  Country: None (occurrence: None)
  Receive Date: 20101005
  Receipt Date: 20100927
  Transmission Date: 20110411
  Serious: Yes (Other)
  Sender: FDA-Public Use
  Company Number: US-AMGEN-QUU439155

PATIENT
  Sex: Female
  Weight: 129.4 kg

DRUGS (6)
  1. NPLATE [Suspect]
     Indication: IDIOPATHIC THROMBOCYTOPENIC PURPURA
     Route: 058
     Dates: start: 20100910
  2. COUMADIN [Concomitant]
  3. UNSPECIFIED MEDICATION [Concomitant]
  4. SYNTHROID [Concomitant]
  5. LASIX [Concomitant]
  6. ATENOLOL [Concomitant]

REACTIONS (1)
  - THERAPEUTIC RESPONSE DECREASED [None]
